FAERS Safety Report 17447114 (Version 2)
Quarter: 2020Q1

REPORT INFORMATION
  Report Type: Spontaneous
  Country: US (occurrence: US)
  Receive Date: 20200221
  Receipt Date: 20200225
  Transmission Date: 20200409
  Serious: No
  Sender: FDA-Public Use
  Company Number: US-GE HEALTHCARE LIFE SCIENCES-2019CSU004741

PATIENT

DRUGS (5)
  1. MYOVIEW [Suspect]
     Active Substance: TECHNETIUM TC-99M TETROFOSMIN
     Indication: SCAN MYOCARDIAL PERFUSION
     Dosage: 1 ML OF 10 MCI FOR REST AND STRESS TEST, SINGLE
     Route: 065
     Dates: start: 20190823, end: 20190823
  2. MYOVIEW [Suspect]
     Active Substance: TECHNETIUM TC-99M TETROFOSMIN
     Indication: PRODUCT USED FOR UNKNOWN INDICATION
  3. SALINE [Concomitant]
     Active Substance: SODIUM CHLORIDE
     Dosage: 16.3 ML, UNK
  4. MYOVIEW [Suspect]
     Active Substance: TECHNETIUM TC-99M TETROFOSMIN
     Indication: CARDIAC STRESS TEST
  5. TECHNETIUM TC 99M TETROFOSMIN [Concomitant]
     Dosage: 58160.3 MBQ (1571.9 MCI)/ 3.7 ML, SINGLE

REACTIONS (2)
  - No adverse event [Recovered/Resolved]
  - Drug ineffective [Recovered/Resolved]

NARRATIVE: CASE EVENT DATE: 20190823
